FAERS Safety Report 9052037 (Version 1)
Quarter: 2013Q1

REPORT INFORMATION
  Report Type: Spontaneous
  Country: US (occurrence: US)
  Receive Date: 20130207
  Receipt Date: 20130207
  Transmission Date: 20140127
  Serious: No
  Sender: FDA-Public Use
  Company Number: US-ROXANE LABORATORIES, INC.-2013-RO-00222RO

PATIENT
  Sex: Female

DRUGS (1)
  1. CALCITRIOL [Suspect]

REACTIONS (2)
  - Hypotension [Unknown]
  - Blood calcium increased [Unknown]
